FAERS Safety Report 16388124 (Version 1)
Quarter: 2019Q2

REPORT INFORMATION
  Report Type: Report from Study
  Country: US (occurrence: US)
  Receive Date: 20190604
  Receipt Date: 20190604
  Transmission Date: 20190711
  Serious: Yes (Hospitalization)
  Sender: FDA-Public Use
  Company Number: US-TEVA-2019-US-1026374

PATIENT
  Age: 61 Year
  Sex: Female
  Weight: 61.7 kg

DRUGS (14)
  1. SYNRIBO [Suspect]
     Active Substance: OMACETAXINE MEPESUCCINATE
     Indication: MYELODYSPLASTIC SYNDROME
     Dosage: 1.5 MG/M2 DAILY; ON DAYS 1-7
     Route: 058
     Dates: start: 20190108, end: 20190110
  2. FENTANYL. [Concomitant]
     Active Substance: FENTANYL
     Indication: PAIN
     Route: 042
     Dates: start: 20181227, end: 20181228
  3. VIDAZA [Suspect]
     Active Substance: AZACITIDINE
     Dosage: 126 MILLIGRAM DAILY;
     Route: 042
     Dates: start: 20190114
  4. NORMAL SALINE [Concomitant]
     Active Substance: SODIUM CHLORIDE
     Dosage: ONCE
     Route: 042
     Dates: start: 20190108, end: 20190108
  5. ONDANSETRON [Concomitant]
     Active Substance: ONDANSETRON
     Indication: NAUSEA
     Dosage: ONCE
     Route: 042
     Dates: start: 20190108, end: 20190108
  6. ONDANSETRON [Concomitant]
     Active Substance: ONDANSETRON
     Indication: VOMITING
     Dosage: 16 MILLIGRAM DAILY; ONCE
     Route: 048
     Dates: start: 20190111, end: 20190227
  7. ACYCLOVIR. [Concomitant]
     Active Substance: ACYCLOVIR
     Indication: ANTIVIRAL PROPHYLAXIS
     Dosage: 800 MILLIGRAM DAILY;
     Route: 048
     Dates: start: 20181227, end: 20190227
  8. MIDAZOLAM [Concomitant]
     Active Substance: MIDAZOLAM HYDROCHLORIDE
     Indication: ANXIETY
     Route: 042
     Dates: start: 20181227, end: 20190306
  9. SYNRIBO [Suspect]
     Active Substance: OMACETAXINE MEPESUCCINATE
     Dosage: 1.5 MG/M2 DAILY;
     Route: 058
     Dates: start: 20190114
  10. VIDAZA [Suspect]
     Active Substance: AZACITIDINE
     Indication: MYELODYSPLASTIC SYNDROME
     Dosage: 126 MILLIGRAM DAILY; ON DAYS 1-7
     Route: 042
     Dates: start: 20190108, end: 20190110
  11. NORMAL SALINE [Concomitant]
     Active Substance: SODIUM CHLORIDE
     Dosage: ONCE
     Route: 040
     Dates: start: 20190112, end: 20190112
  12. NORMAL SALINE [Concomitant]
     Active Substance: SODIUM CHLORIDE
     Indication: DEHYDRATION
     Route: 042
     Dates: start: 20181227, end: 20181228
  13. TRAMADOL. [Concomitant]
     Active Substance: TRAMADOL
     Indication: PAIN
     Dosage: ONCE
     Route: 048
     Dates: start: 20190111, end: 20190111
  14. FAMOTIDINE. [Concomitant]
     Active Substance: FAMOTIDINE
     Indication: OEDEMA
     Dosage: 40 MILLIGRAM DAILY;
     Route: 048
     Dates: start: 20190112, end: 20190227

REACTIONS (2)
  - Febrile neutropenia [Recovered/Resolved]
  - Acute kidney injury [Recovered/Resolved]

NARRATIVE: CASE EVENT DATE: 20190111
